FAERS Safety Report 9525088 (Version 1)
Quarter: 2013Q1

REPORT INFORMATION
  Report Type: Spontaneous
  Country: US (occurrence: None)
  Receive Date: 20130314
  Receipt Date: 20130314
  Transmission Date: 20140127
  Serious: No
  Sender: FDA-Public Use
  Company Number: 1211USA010230

PATIENT
  Age: 42 Year
  Sex: Male
  Weight: 94.8 kg

DRUGS (6)
  1. VICTRELIS (BOCEPREVIR) CAPSULE, 200MG [Suspect]
     Indication: HEPATITIS C
     Dosage: 4 DF, 3XD, ORAL
     Route: 048
     Dates: end: 20121113
  2. PEGINTRON (PEGINTRON ALFA-2B) POWDER FOR INJECTION [Suspect]
     Dosage: UNK, QW, SUBCUTANEOUS
     Route: 058
     Dates: start: 20120312, end: 20121113
  3. RIBASPHERE (RIBAVIRIN) [Suspect]
     Indication: HEPATITIS C
     Dosage: 3 DF, QAM
     Dates: end: 20121113
  4. CARISOPRODOL (CARISOPRODOL) TABLET, 350 MG [Concomitant]
  5. ALPRAZOLAM (ALPRAZOLAM) TABLET, 2 MG [Concomitant]
  6. ACETAMINOPHEN (+) HYDROCODONE BITARTRATE (ACETAMINOPHEN, HYDROCODONE BITARTRATE) TABLET [Concomitant]

REACTIONS (4)
  - Cold sweat [None]
  - Disturbance in attention [None]
  - Anxiety [None]
  - Nervousness [None]
